FAERS Safety Report 18956993 (Version 1)
Quarter: 2021Q1

REPORT INFORMATION
  Report Type: Report from Study
  Country: CA (occurrence: CA)
  Receive Date: 20210302
  Receipt Date: 20210302
  Transmission Date: 20210420
  Serious: Yes (Hospitalization, Other)
  Sender: FDA-Public Use
  Company Number: CA-SUN PHARMACEUTICAL INDUSTRIES LTD-2021R1-283169

PATIENT
  Age: 81 Year
  Sex: Female

DRUGS (1)
  1. GEMCITABIN SUN [Suspect]
     Active Substance: GEMCITABINE
     Indication: CHEMOTHERAPY
     Dosage: UNK
     Route: 065

REACTIONS (3)
  - Systemic inflammatory response syndrome [Unknown]
  - Nausea [Unknown]
  - Vomiting [Unknown]
